FAERS Safety Report 8821190 (Version 2)
Quarter: 2015Q2

REPORT INFORMATION
  Report Type: Report from Study
  Country: US (occurrence: US)
  Receive Date: 20121002
  Receipt Date: 20150417
  Transmission Date: 20150821
  Serious: Yes (Death)
  Sender: FDA-Public Use
  Company Number: US-ROCHE-1130795

PATIENT
  Sex: Male

DRUGS (10)
  1. BENADRYL [Concomitant]
     Active Substance: DIPHENHYDRAMINE HYDROCHLORIDE
  2. ATIVAN [Concomitant]
     Active Substance: LORAZEPAM
     Route: 065
  3. PREDNISONE. [Concomitant]
     Active Substance: PREDNISONE
     Route: 065
  4. PREDNISONE. [Concomitant]
     Active Substance: PREDNISONE
     Route: 065
  5. RITUXAN [Suspect]
     Active Substance: RITUXIMAB
     Indication: RHEUMATOID ARTHRITIS
     Dosage: DAY 1 AND DAY 15
     Route: 042
     Dates: start: 20071029
  6. PREDNISONE. [Concomitant]
     Active Substance: PREDNISONE
     Route: 065
  7. RITUXAN [Suspect]
     Active Substance: RITUXIMAB
     Indication: SOFT TISSUE SARCOMA
  8. CYTOXAN [Concomitant]
     Active Substance: CYCLOPHOSPHAMIDE
     Route: 065
     Dates: start: 200709, end: 200805
  9. ALOXI [Concomitant]
     Active Substance: PALONOSETRON HYDROCHLORIDE
     Route: 065
  10. DECADRON [Concomitant]
     Active Substance: DEXAMETHASONE
     Route: 065

REACTIONS (18)
  - Mononeuropathy [Recovered/Resolved]
  - Orthostatic hypotension [Unknown]
  - Lung disorder [Unknown]
  - Rales [Unknown]
  - Fatigue [Unknown]
  - Vasculitis [Unknown]
  - Weight decreased [Unknown]
  - Cushingoid [Unknown]
  - Cardiac murmur [Unknown]
  - Ill-defined disorder [Unknown]
  - Death [Fatal]
  - Herpes zoster disseminated [Recovered/Resolved]
  - Peroneal nerve palsy [Unknown]
  - Clostridium difficile infection [Unknown]
  - Oedema peripheral [Unknown]
  - Off label use [Unknown]
  - Muscular weakness [Unknown]
  - Breath sounds abnormal [Unknown]
